FAERS Safety Report 8435050 (Version 2)
Quarter: 2013Q4

REPORT INFORMATION
  Report Type: Spontaneous
  Country: US (occurrence: US)
  Receive Date: 20120301
  Receipt Date: 20131108
  Transmission Date: 20140711
  Serious: Yes (Other)
  Sender: FDA-Public Use
  Company Number: US-JNJFOC-20120211101

PATIENT
  Sex: Female
  Weight: 92.08 kg

DRUGS (11)
  1. SANDOZ FENTANYL MATRIX TRANSDERMAL SYSTEM [Suspect]
     Indication: ARTHRALGIA
     Dosage: NDC NUMBER- UNKNOWN
     Route: 062
  2. SANDOZ FENTANYL MATRIX TRANSDERMAL SYSTEM [Suspect]
     Indication: CHRONIC FATIGUE SYNDROME
     Dosage: NDC NUMBER- UNKNOWN
     Route: 062
  3. SANDOZ FENTANYL MATRIX TRANSDERMAL SYSTEM [Suspect]
     Indication: FIBROMYALGIA
     Dosage: NDC NUMBER- UNKNOWN
     Route: 062
  4. SANDOZ FENTANYL TRANSDERMAL SYSTEM [Suspect]
     Indication: ARTHRALGIA
     Dosage: NDC NUMBER- UNSPECIFIED
     Route: 062
     Dates: start: 2005
  5. SANDOZ FENTANYL TRANSDERMAL SYSTEM [Suspect]
     Indication: CHRONIC FATIGUE SYNDROME
     Dosage: NDC NUMBER- UNSPECIFIED
     Route: 062
     Dates: start: 2005
  6. SANDOZ FENTANYL TRANSDERMAL SYSTEM [Suspect]
     Indication: FIBROMYALGIA
     Dosage: NDC NUMBER- UNSPECIFIED
     Route: 062
     Dates: start: 2005
  7. THYROID SUPPLEMENTS [Concomitant]
     Indication: THYROIDECTOMY
     Route: 048
  8. TYLENOL EXTRA STRENGTH [Concomitant]
     Indication: PAIN
     Dosage: 500MG/ TABLET/ 2-500 MCG/ TWICE DAILY
     Route: 065
  9. B12 SHOT [Concomitant]
     Indication: CHRONIC FATIGUE SYNDROME
     Route: 058
  10. VITAMIN [Concomitant]
     Indication: NUTRITIONAL SUPPLEMENTATION
     Route: 048
  11. MAGNESIUM [Concomitant]
     Indication: NUTRITIONAL SUPPLEMENTATION
     Route: 050

REACTIONS (4)
  - Breast cancer [Recovered/Resolved]
  - Drug withdrawal syndrome [Not Recovered/Not Resolved]
  - Somnolence [Not Recovered/Not Resolved]
  - Product quality issue [Unknown]
